FAERS Safety Report 26049445 (Version 1)
Quarter: 2025Q4

REPORT INFORMATION
  Report Type: Spontaneous
  Country: RU (occurrence: RU)
  Receive Date: 20251115
  Receipt Date: 20251115
  Transmission Date: 20260117
  Serious: Yes (Other)
  Sender: NOVARTIS
  Company Number: RU-002147023-NVSC2025RU174602

PATIENT

DRUGS (1)
  1. SIPONIMOD [Suspect]
     Active Substance: SIPONIMOD
     Indication: Product used for unknown indication
     Dosage: 2 MG
     Route: 065
     Dates: end: 20251106

REACTIONS (1)
  - Macular oedema [Unknown]
